FAERS Safety Report 8853677 (Version 3)
Quarter: 2013Q1

REPORT INFORMATION
  Report Type: Spontaneous
  Country: US (occurrence: US)
  Receive Date: 20121023
  Receipt Date: 20130123
  Transmission Date: 20140127
  Serious: Yes (Disabling)
  Sender: FDA-Public Use
  Company Number: US-009507513-1210USA008823

PATIENT
  Sex: Female

DRUGS (3)
  1. VICTRELIS [Suspect]
     Indication: HEPATITIS C
     Dosage: 4 CAPSULES 3 TIMES A DAY
     Route: 048
     Dates: start: 20111212, end: 20120527
  2. RIBAPAK [Suspect]
     Dosage: UNK
     Dates: start: 20111107, end: 20120527
  3. PEGINTRON [Suspect]
     Dosage: UNK
     Route: 058
     Dates: start: 20111107, end: 20120527

REACTIONS (10)
  - Anaemia [Recovered/Resolved]
  - Cognitive disorder [Not Recovered/Not Resolved]
  - White blood cell count decreased [Recovered/Resolved]
  - Haematocrit decreased [Recovered/Resolved]
  - Pruritus [Unknown]
  - Pyrexia [Unknown]
  - Haemoglobin decreased [Recovered/Resolved]
  - Platelet count decreased [Recovered/Resolved]
  - Asthenia [Not Recovered/Not Resolved]
  - Cardiac disorder [Unknown]
